FAERS Safety Report 4955492-6 (Version None)
Quarter: 2006Q1

REPORT INFORMATION
  Report Type: 
  Country: None (occurrence: None)
  Receive Date: 20060328
  Receipt Date: 20060317
  Transmission Date: 20060701
  Serious: Yes (Other)
  Sender: FDA-Public Use
  Company Number: RU-GLAXOSMITHKLINE-B0417291A

PATIENT
  Age: 5 Year
  Sex: Female
  Weight: 24 kg

DRUGS (1)
  1. SERETIDE [Suspect]
     Route: 065
     Dates: start: 20050501, end: 20051201

REACTIONS (6)
  - BODY TEMPERATURE INCREASED [None]
  - EAR PAIN [None]
  - HYPERAEMIA [None]
  - PHARYNGITIS [None]
  - PHARYNGOLARYNGEAL PAIN [None]
  - PHARYNGOTONSILLITIS [None]
